FAERS Safety Report 9166454 (Version 1)
Quarter: 2013Q1

REPORT INFORMATION
  Report Type: Spontaneous
  Country: SE (occurrence: SE)
  Receive Date: 20130315
  Receipt Date: 20130315
  Transmission Date: 20140127
  Serious: Yes (Life-Threatening)
  Sender: FDA-Public Use
  Company Number: SE-MYLANLABS-2013S1005015

PATIENT
  Age: 55 Year
  Sex: Female

DRUGS (3)
  1. LOSARTAN [Suspect]
     Indication: HYPERTENSION
     Dosage: 50MG
     Route: 048
  2. PREDNISOLONE [Concomitant]
     Indication: NEURODERMATITIS
     Route: 048
  3. TAVEGYL [Concomitant]
     Indication: NEURODERMATITIS
     Route: 065

REACTIONS (1)
  - Arteriospasm coronary [Recovered/Resolved with Sequelae]
